FAERS Safety Report 6858069-0 (Version None)
Quarter: 2010Q3

REPORT INFORMATION
  Report Type: 
  Country: None (occurrence: None)
  Receive Date: 20100719
  Receipt Date: 20080201
  Transmission Date: 20110219
  Serious: No
  Sender: FDA-Public Use
  Company Number: US-PFIZER INC-2008012416

PATIENT
  Sex: Male

DRUGS (18)
  1. CHANTIX [Suspect]
     Indication: SMOKING CESSATION THERAPY
     Route: 048
     Dates: start: 20080121
  2. FENTANYL [Concomitant]
  3. PERCOCET [Concomitant]
  4. TIZANIDINE HCL [Concomitant]
  5. PROMETHAZINE [Concomitant]
  6. ACYCLOVIR [Concomitant]
  7. COMBIVIR [Concomitant]
  8. REYATAZ [Concomitant]
  9. VIREAD [Concomitant]
  10. LYRICA [Concomitant]
  11. REMERON [Concomitant]
  12. ZYPREXA [Concomitant]
  13. ANTABUSE [Concomitant]
  14. LAMICTAL [Concomitant]
  15. ALPRAZOLAM [Concomitant]
  16. COMBIVENT [Concomitant]
  17. FLOVENT [Concomitant]
  18. FLONASE [Concomitant]

REACTIONS (1)
  - AGITATION [None]
